FAERS Safety Report 17391765 (Version 1)
Quarter: 2020Q1

REPORT INFORMATION
  Report Type: Report from Study
  Country: US (occurrence: US)
  Receive Date: 20200207
  Receipt Date: 20200207
  Transmission Date: 20200409
  Serious: Yes (Hospitalization)
  Sender: FDA-Public Use
  Company Number: US-AVEXISPRA-CTR-AVXS12020-0001

PATIENT
  Age: 1 Year
  Sex: Female

DRUGS (1)
  1. AVXS-101 [Suspect]
     Active Substance: ONASEMNOGENE ABEPARVOVEC
     Indication: SPINAL MUSCULAR ATROPHY
     Dosage: UNK UNK, SINGLE
     Route: 065
     Dates: start: 20200129, end: 20200129

REACTIONS (1)
  - Influenza [Unknown]

NARRATIVE: CASE EVENT DATE: 20200122
